FAERS Safety Report 9356789 (Version 4)
Quarter: 2014Q2

REPORT INFORMATION
  Report Type: Report from Study
  Country: DE (occurrence: DE)
  Receive Date: 20130619
  Receipt Date: 20140611
  Transmission Date: 20141212
  Serious: No
  Sender: FDA-Public Use
  Company Number: PHHY2013DE058927

PATIENT
  Sex: Female

DRUGS (13)
  1. AMN107 [Suspect]
     Indication: CHRONIC MYELOID LEUKAEMIA
     Dosage: 600 MG, PER DAY
     Route: 048
     Dates: start: 20120418
  2. OMEPRAZOLE [Concomitant]
     Dosage: 40 MG, UNK
     Dates: start: 20120320, end: 20120411
  3. PANTOPRAZOLE [Concomitant]
     Dosage: 80 MG, UNK
     Dates: start: 20120412, end: 201205
  4. MICROGYNON [Concomitant]
     Dosage: 0.03 MG, UNK
     Dates: start: 200602
  5. MICROGYNON [Concomitant]
     Dosage: 0.15 MG, UNK
     Dates: start: 200602
  6. CIPROFLOXACIN LACTATE [Concomitant]
     Dosage: 500 MG, UNK
     Dates: start: 20120920, end: 20120927
  7. DIMETINDENE MALEATE [Concomitant]
     Dates: start: 20121017, end: 20121029
  8. MIRTAZAPINE [Concomitant]
     Dosage: 15 MG, UNK
     Dates: start: 20121029, end: 20121030
  9. DESLORATADIN [Concomitant]
     Dosage: 5 MG, UNK
     Dates: start: 20121029, end: 20121112
  10. DESLORATADIN [Concomitant]
     Dosage: 2.5 MG, UNK
     Dates: start: 20121112
  11. DESLORATADIN [Concomitant]
     Dosage: 2.5 MG, UNK
     Dates: start: 20130201
  12. DEKRISTOL [Concomitant]
     Dosage: 2000 U, QW
     Dates: start: 20130410, end: 20130805
  13. DEKRISTOL [Concomitant]
     Dosage: 1000 IU, UNK
     Dates: start: 20131206

REACTIONS (2)
  - Vitamin D deficiency [Recovered/Resolved]
  - Pruritus [Not Recovered/Not Resolved]
